FAERS Safety Report 4432241-1 (Version None)
Quarter: 2004Q3

REPORT INFORMATION
  Report Type: 
  Country: None (occurrence: None)
  Receive Date: 20040820
  Receipt Date: 20040809
  Transmission Date: 20050211
  Serious: No
  Sender: FDA-Public Use
  Company Number: RS004613-J

PATIENT
  Age: 63 Year
  Sex: Male

DRUGS (8)
  1. PARIET           (RABEPRAZOLE SODIUM) [Suspect]
     Indication: GASTRIC ULCER
     Dosage: 20 MG, 2 IN 1 D, ORAL
     Route: 048
     Dates: start: 20040507, end: 20040519
  2. FERROMIA    (FERROUS CITRATE) [Suspect]
     Indication: ANAEMIA
     Dosage: 100 MG, 2 IN 1 D, ORAL
     Route: 048
     Dates: start: 20040507, end: 20040519
  3. OMEPRAZOLE [Suspect]
     Dosage: 2 DOSAGE FORMS, 2 IN 1 D
     Dates: start: 20040503, end: 20040508
  4. PROMAC (POLAPREZINC) [Suspect]
     Indication: GASTRIC ULCER
     Dosage: 1 GM, 1 IN 1 D, ORAL
     Route: 048
     Dates: start: 20040507, end: 20040519
  5. AMINOFLUID (AMINOFLUID) [Concomitant]
  6. ADONA (CARBAZOCHROME SODIUM SULFONATE) [Concomitant]
  7. TRANSAMIN (TRANEXAMIC ACID) [Concomitant]
  8. FESIN (SACCHRATED IRON OXIDE) [Concomitant]

REACTIONS (3)
  - DYSPNOEA EXERTIONAL [None]
  - HAEMOLYTIC ANAEMIA [None]
  - URINARY SEDIMENT PRESENT [None]
